FAERS Safety Report 12073852 (Version 3)
Quarter: 2016Q1

REPORT INFORMATION
  Report Type: Report from Study
  Country: FR (occurrence: FR)
  Receive Date: 20160212
  Receipt Date: 20160324
  Transmission Date: 20160526
  Serious: Yes (Hospitalization, Other)
  Sender: FDA-Public Use
  Company Number: FR-ASTELLAS-2016US004647

PATIENT
  Sex: Male
  Weight: 57 kg

DRUGS (2)
  1. ARACYTINE [Suspect]
     Active Substance: CYTARABINE
     Indication: PRODUCT USED FOR UNKNOWN INDICATION
     Dosage: UNK, UNKNOWN FREQ.
     Route: 065
  2. MICAFUNGIN [Suspect]
     Active Substance: MICAFUNGIN
     Indication: ANTIFUNGAL PROPHYLAXIS
     Route: 065
     Dates: start: 20151019, end: 20151024

REACTIONS (21)
  - Bronchopulmonary aspergillosis [Recovering/Resolving]
  - Epistaxis [Recovered/Resolved]
  - Tachycardia [Recovered/Resolved]
  - Rash [Recovering/Resolving]
  - Vomiting [Recovered/Resolved]
  - Vomiting [Recovered/Resolved]
  - Staphylococcal infection [Recovering/Resolving]
  - Aplasia [Recovering/Resolving]
  - Pyrexia [Recovered/Resolved]
  - Febrile bone marrow aplasia [Recovered/Resolved]
  - Aplasia [Recovering/Resolving]
  - Fungal infection [Unknown]
  - Petechiae [Recovered/Resolved]
  - Diarrhoea [Recovered/Resolved]
  - Pyrexia [Recovered/Resolved]
  - Nausea [Recovered/Resolved]
  - Intentional product misuse [Unknown]
  - Cardiotoxicity [Recovered/Resolved]
  - Anal inflammation [Recovering/Resolving]
  - Staphylococcus test positive [Recovering/Resolving]
  - Chest pain [Recovered/Resolved]

NARRATIVE: CASE EVENT DATE: 20151019
